FAERS Safety Report 24063177 (Version 2)
Quarter: 2024Q3

REPORT INFORMATION
  Report Type: Spontaneous
  Country: JP (occurrence: JP)
  Receive Date: 20240709
  Receipt Date: 20240815
  Transmission Date: 20241016
  Serious: Yes (Other)
  Sender: Visiox
  Company Number: JP-Santen Ltd-2024-JPN-006496

PATIENT
  Age: 67 Year
  Sex: Male

DRUGS (2)
  1. OMIDENEPAG ISOPROPYL [Suspect]
     Active Substance: OMIDENEPAG ISOPROPYL
     Indication: Normal tension glaucoma
     Dosage: 4 TIMES A DAY (4 IN 1 D)
     Route: 061
  2. RIPASUDIL HYDROCHLORIDE DIHYDRATE [Concomitant]
     Active Substance: RIPASUDIL HYDROCHLORIDE DIHYDRATE
     Indication: Normal tension glaucoma
     Dosage: TWICE A DAY (2 IN 1 D)
     Route: 061

REACTIONS (2)
  - Goniotomy [Unknown]
  - Cataract operation [Unknown]
